FAERS Safety Report 15682742 (Version 3)
Quarter: 2019Q2

REPORT INFORMATION
  Report Type: Spontaneous
  Country: CA (occurrence: CA)
  Receive Date: 20181203
  Receipt Date: 20190416
  Transmission Date: 20190711
  Serious: Yes (Death, Hospitalization, Other)
  Sender: FDA-Public Use
  Company Number: CA-BEH-2018097231

PATIENT
  Age: 72 Year
  Sex: Female

DRUGS (1)
  1. PRIVIGEN [Suspect]
     Active Substance: HUMAN IMMUNOGLOBULIN G
     Indication: SEPTIC SHOCK
     Dosage: FRACTION 1/2, 96 ML, UNK
     Route: 065
     Dates: start: 20181126, end: 20181126

REACTIONS (6)
  - Bradycardia [Fatal]
  - Shock [Fatal]
  - Loss of consciousness [Fatal]
  - Hypotension [Fatal]
  - Diarrhoea haemorrhagic [Fatal]
  - Depressed level of consciousness [Fatal]

NARRATIVE: CASE EVENT DATE: 20181126
